FAERS Safety Report 13935474 (Version 1)
Quarter: 2017Q3

REPORT INFORMATION
  Report Type: Spontaneous
  Country: JP (occurrence: JP)
  Receive Date: 20170905
  Receipt Date: 20170905
  Transmission Date: 20171127
  Serious: Yes (Hospitalization, Other)
  Sender: FDA-Public Use
  Company Number: JP-EMD SERONO-8163817

PATIENT
  Age: 33 Year
  Sex: Female

DRUGS (6)
  1. HUMAN MENOPAUSAL GONADOTROPHIN [Suspect]
     Active Substance: GONADOTROPHIN, CHORIONIC
     Route: 030
     Dates: start: 20160809, end: 20160809
  2. HUMAN MENOPAUSAL GONADOTROPHIN [Suspect]
     Active Substance: GONADOTROPHIN, CHORIONIC
     Indication: OVULATION INDUCTION
     Route: 030
     Dates: start: 20160806, end: 20160808
  3. CETROTIDE                          /01453601/ [Concomitant]
     Indication: PREVENTION OF PREMATURE OVULATION
     Route: 058
     Dates: start: 20160808, end: 20160808
  4. GONAL-F RFF [Suspect]
     Active Substance: FOLLITROPIN
     Indication: OVULATION INDUCTION
     Route: 058
     Dates: start: 20160802, end: 20160805
  5. CABERGOLINE. [Concomitant]
     Active Substance: CABERGOLINE
     Indication: PROPHYLAXIS
     Route: 048
     Dates: start: 20160809, end: 20160818
  6. BUSERECUR [Concomitant]
     Active Substance: BUSERELIN ACETATE
     Indication: OVULATION INDUCTION
     Route: 045
     Dates: start: 20160809, end: 20160809

REACTIONS (2)
  - Haemorrhagic ascites [Recovering/Resolving]
  - Ovarian hyperstimulation syndrome [Recovering/Resolving]

NARRATIVE: CASE EVENT DATE: 20160809
